FAERS Safety Report 12231633 (Version 1)
Quarter: 2016Q2

REPORT INFORMATION
  Report Type: Spontaneous
  Country: FI (occurrence: FI)
  Receive Date: 20160401
  Receipt Date: 20160401
  Transmission Date: 20160815
  Serious: Yes (Hospitalization, Other)
  Sender: FDA-Public Use
  Company Number: FI-BAYER-2016-056608

PATIENT
  Age: 20 Year
  Sex: Female

DRUGS (1)
  1. JAYDESS [Suspect]
     Active Substance: LEVONORGESTREL
     Dosage: 14 MCG/24HR, CONT
     Route: 015
     Dates: start: 20141202

REACTIONS (6)
  - Ectopic pregnancy with contraceptive device [Recovering/Resolving]
  - Off label use of device [None]
  - Ascites [None]
  - Procedural pain [None]
  - Device difficult to use [None]
  - Abdominal pain [Recovering/Resolving]

NARRATIVE: CASE EVENT DATE: 20141202
